FAERS Safety Report 5177055-2 (Version None)
Quarter: 2006Q4

REPORT INFORMATION
  Report Type: 
  Country: None (occurrence: None)
  Receive Date: 20061218
  Receipt Date: 20061206
  Transmission Date: 20070319
  Serious: Yes (Death)
  Sender: FDA-Public Use
  Company Number: FR-GLAXOSMITHKLINE-B0450154A

PATIENT
  Age: 12 Year
  Sex: Male

DRUGS (1)
  1. NELARABINE [Suspect]
     Indication: LYMPHOCYTIC LEUKAEMIA
     Dosage: 650MGM2 PER DAY
     Route: 065

REACTIONS (5)
  - BLAST CELL COUNT INCREASED [None]
  - CEREBRAL HAEMORRHAGE [None]
  - GASTROINTESTINAL HAEMORRHAGE [None]
  - HEADACHE [None]
  - LEUKOCYTOSIS [None]
